FAERS Safety Report 6059331-4 (Version None)
Quarter: 2009Q1

REPORT INFORMATION
  Report Type: 
  Country: None (occurrence: None)
  Receive Date: 20090130
  Receipt Date: 20090128
  Transmission Date: 20090719
  Serious: Yes (Hospitalization, Other)
  Sender: FDA-Public Use
  Company Number: FR-RB-008864-09

PATIENT
  Sex: Male

DRUGS (2)
  1. TEMGESIC [Suspect]
     Indication: SUICIDE ATTEMPT
     Dosage: DOSING INFORMATION UNKNOWN.
     Route: 065
  2. ATARAX [Suspect]
     Indication: SUICIDE ATTEMPT
     Dosage: DOSING INFORMATION UNKNOWN.
     Route: 065

REACTIONS (1)
  - SUICIDE ATTEMPT [None]
